FAERS Safety Report 5807036-4 (Version None)
Quarter: 2008Q3

REPORT INFORMATION
  Report Type: 
  Country: None (occurrence: None)
  Receive Date: 20080711
  Receipt Date: 20080701
  Transmission Date: 20090109
  Serious: Yes (Death)
  Sender: FDA-Public Use
  Company Number: JP-ABBOTT-08P-087-0460944-00

PATIENT
  Age: 89 Year
  Sex: Male

DRUGS (15)
  1. LUPRON DEPOT [Suspect]
     Indication: PROSTATE CANCER STAGE IV
     Route: 058
     Dates: start: 20060810
  2. ALINAMIN [Concomitant]
     Indication: HYPOVITAMINOSIS
     Route: 048
     Dates: end: 20061005
  3. BICALUTAMIDE [Concomitant]
     Indication: PROSTATE CANCER STAGE IV
     Route: 048
     Dates: start: 20070418, end: 20070711
  4. TAMSULOSIN HCL [Concomitant]
     Indication: BENIGN PROSTATIC HYPERPLASIA
     Route: 048
  5. PREDNISONE TAB [Concomitant]
     Indication: MUSCULOSKELETAL PAIN
     Route: 048
     Dates: end: 20060920
  6. PREDNISONE TAB [Concomitant]
     Route: 048
     Dates: start: 20060921
  7. TORSEMIDE [Concomitant]
     Indication: OEDEMA
     Route: 048
     Dates: end: 20060920
  8. TORSEMIDE [Concomitant]
     Route: 048
     Dates: start: 20060921
  9. TEPRENONE [Concomitant]
     Indication: GASTRITIS
     Route: 048
  10. ROXITHROMYCIN [Concomitant]
     Indication: GASTRIC ULCER
     Route: 048
  11. CALCITRIOL [Concomitant]
     Indication: BACK PAIN
     Route: 048
     Dates: end: 20060830
  12. MOXIFLOXACIN HCL [Concomitant]
     Indication: DRUG USE FOR UNKNOWN INDICATION
     Route: 048
     Dates: start: 20070930, end: 20071008
  13. FERROUS CITRATE [Concomitant]
     Indication: DRUG USE FOR UNKNOWN INDICATION
     Route: 048
     Dates: start: 20070613
  14. CARBOCISTEINE [Concomitant]
     Indication: DRUG USE FOR UNKNOWN INDICATION
     Route: 048
     Dates: start: 20071001
  15. MOSAPRIDE CITRATE [Concomitant]
     Indication: DRUG USE FOR UNKNOWN INDICATION
     Route: 048
     Dates: start: 20071004

REACTIONS (4)
  - ANAEMIA [None]
  - BRONCHITIS CHRONIC [None]
  - GASTRITIS [None]
  - PROSTATE CANCER [None]
